FAERS Safety Report 12277047 (Version 1)
Quarter: 2016Q2

REPORT INFORMATION
  Report Type: Spontaneous
  Country: US (occurrence: None)
  Receive Date: 20160415
  Receipt Date: 20160415
  Transmission Date: 20160815
  Serious: Yes (Disabling)
  Sender: FDA-Public Use
  Company Number: None

PATIENT
  Age: 30 Year
  Sex: Female
  Weight: 167.83 kg

DRUGS (2)
  1. MIRALAX [Concomitant]
     Active Substance: POLYETHYLENE GLYCOL 3350
  2. TRAMADOL, 50 MG [Suspect]
     Active Substance: TRAMADOL
     Indication: PAIN IN EXTREMITY
     Dosage: 30 TABLES  EVERY 6  HOURS
     Route: 048
     Dates: start: 20160413, end: 20160413

REACTIONS (1)
  - Dysarthria [None]

NARRATIVE: CASE EVENT DATE: 20160413
